FAERS Safety Report 17555745 (Version 1)
Quarter: 2020Q1

REPORT INFORMATION
  Report Type: Spontaneous
  Country: US (occurrence: US)
  Receive Date: 20200318
  Receipt Date: 20200318
  Transmission Date: 20200409
  Serious: Yes (Other)
  Sender: FDA-Public Use
  Company Number: US-PFIZER INC-2020115633

PATIENT
  Age: 57 Year
  Sex: Female

DRUGS (2)
  1. GENOTROPIN [Suspect]
     Active Substance: SOMATROPIN
     Dosage: 0.2 MG, ALTERNATE DAY
  2. GENOTROPIN [Suspect]
     Active Substance: SOMATROPIN
     Dosage: 0.4 MG, ALTERNATE DAY

REACTIONS (14)
  - Mood altered [Unknown]
  - Asthenia [Unknown]
  - Anal incontinence [Unknown]
  - Feeling abnormal [Unknown]
  - Headache [Unknown]
  - Memory impairment [Unknown]
  - Social problem [Unknown]
  - Arthralgia [Unknown]
  - Fatigue [Unknown]
  - Tongue biting [Unknown]
  - Seizure [Unknown]
  - Pain in extremity [Unknown]
  - Therapeutic product effect incomplete [Unknown]
  - Aphasia [Unknown]
